FAERS Safety Report 6462242-3 (Version None)
Quarter: 2009Q4

REPORT INFORMATION
  Report Type: 
  Country: None (occurrence: None)
  Receive Date: 20091130
  Receipt Date: 20091118
  Transmission Date: 20100525
  Serious: Yes (Hospitalization)
  Sender: FDA-Public Use
  Company Number: IT-BAYER-200935333GPV

PATIENT
  Age: 37 Year
  Sex: Female

DRUGS (1)
  1. YASMIN [Suspect]
     Indication: ORAL CONTRACEPTION
     Route: 048
     Dates: start: 20090322, end: 20090922

REACTIONS (4)
  - ECTROPION OF CERVIX [None]
  - GENITAL HAEMORRHAGE [None]
  - METRORRHAGIA [None]
  - PELVIC PAIN [None]
